FAERS Safety Report 19122905 (Version 3)
Quarter: 2021Q2

REPORT INFORMATION
  Report Type: Report from Study
  Country: None (occurrence: TR)
  Receive Date: 20210412
  Receipt Date: 20210512
  Transmission Date: 20210717
  Serious: Yes (Hospitalization)
  Sender: FDA-Public Use
  Company Number: TR-ABBVIE-21K-161-3852339-00

PATIENT
  Age: 76 Year
  Sex: Male
  Weight: 65 kg

DRUGS (6)
  1. PEXA XR [Concomitant]
     Indication: PARKINSON^S DISEASE
     Route: 048
     Dates: start: 202101
  2. DROPODEX [Concomitant]
     Active Substance: DEXAMETHASONE SODIUM PHOSPHATE
     Indication: PARKINSON^S DISEASE
     Route: 048
  3. DUODOPA [Suspect]
     Active Substance: CARBIDOPA\LEVODOPA
     Dosage: MORNING DOSE(ML): 8.00 CONTINUOUS DOSE (ML): 2.40 EXTRA DOSE (ML): 1.00
     Route: 050
     Dates: start: 20210408
  4. SEREX [Concomitant]
     Indication: PARKINSON^S DISEASE
     Route: 048
     Dates: start: 202101
  5. DUODOPA [Suspect]
     Active Substance: CARBIDOPA\LEVODOPA
     Indication: PARKINSON^S DISEASE
     Dosage: MORNING DOSE(ML): 8.00 CONTINUOUS DOSE (ML): 2.80 EXTRA DOSE (ML): 1.00
     Route: 050
     Dates: start: 20190717, end: 20210408
  6. KINZY [Concomitant]
     Indication: PARKINSON^S DISEASE
     Route: 048
     Dates: start: 202101

REACTIONS (4)
  - COVID-19 [Recovered/Resolved]
  - Dyskinesia [Recovered/Resolved]
  - Device dislocation [Not Recovered/Not Resolved]
  - Incorrect dose administered [Not Recovered/Not Resolved]

NARRATIVE: CASE EVENT DATE: 20210408
